FAERS Safety Report 15640793 (Version 7)
Quarter: 2020Q4

REPORT INFORMATION
  Report Type: Spontaneous
  Country: CA (occurrence: CA)
  Receive Date: 20181120
  Receipt Date: 20201016
  Transmission Date: 20210113
  Serious: Yes (Other)
  Sender: FDA-Public Use
  Company Number: CA-SA-2015SA051602

PATIENT

DRUGS (48)
  1. XELJANZ [Suspect]
     Active Substance: TOFACITINIB CITRATE
     Indication: PRODUCT USED FOR UNKNOWN INDICATION
     Dosage: UNK UNK,UNK
     Route: 065
  2. DESOXIMETASONE. [Concomitant]
     Active Substance: DESOXIMETASONE
  3. KENALOG [Concomitant]
     Active Substance: TRIAMCINOLONE ACETONIDE
  4. REMICADE [Suspect]
     Active Substance: INFLIXIMAB
     Indication: RHEUMATOID ARTHRITIS
     Dosage: 300 MG,QM
     Route: 042
     Dates: start: 200407, end: 2005
  5. DYCLONE [Concomitant]
     Active Substance: DYCLONINE HYDROCHLORIDE
  6. CORTISONE [Concomitant]
     Active Substance: CORTISONE
     Dosage: UNK
  7. RESTASIS [Concomitant]
     Active Substance: CYCLOSPORINE
  8. DESOXIMETASONE. [Concomitant]
     Active Substance: DESOXIMETASONE
  9. METHOTREXATE. [Suspect]
     Active Substance: METHOTREXATE
     Indication: RHEUMATOID ARTHRITIS
     Dosage: 25 MG,QW
     Route: 065
     Dates: start: 1995, end: 200411
  10. HYDROXYCHLOROQUINE [Suspect]
     Active Substance: HYDROXYCHLOROQUINE
     Dosage: 40 MG, BID
     Route: 065
  11. HUMIRA [Suspect]
     Active Substance: ADALIMUMAB
     Indication: RHEUMATOID ARTHRITIS
     Dosage: 40 MG,QOW
     Route: 058
     Dates: start: 2005, end: 2006
  12. METHOTREXATE SODIUM. [Suspect]
     Active Substance: METHOTREXATE SODIUM
     Indication: RHEUMATOID ARTHRITIS
     Dosage: 25 MG, QW
  13. BENADRYL [Concomitant]
     Active Substance: DIPHENHYDRAMINE HYDROCHLORIDE
     Dosage: UNK UNK,PRN
  14. PANTOPRAZOLE [Concomitant]
     Active Substance: PANTOPRAZOLE
     Dosage: UNK
  15. HYDROMORPHONE [Concomitant]
     Active Substance: HYDROMORPHONE
  16. DIPHENHYDRAMINE. [Concomitant]
     Active Substance: DIPHENHYDRAMINE
  17. HYDROXYCHLOROQUINE SULFATE. [Suspect]
     Active Substance: HYDROXYCHLOROQUINE SULFATE
     Indication: RHEUMATOID ARTHRITIS
     Dosage: 40 MG
     Route: 065
  18. TOCILIZUMAB. [Suspect]
     Active Substance: TOCILIZUMAB
     Indication: RHEUMATOID ARTHRITIS
     Dosage: UNK
     Route: 042
  19. DARIFENACIN. [Concomitant]
     Active Substance: DARIFENACIN
     Dosage: UNK UNK,PRN
  20. DILAUDID [Concomitant]
     Active Substance: HYDROMORPHONE HYDROCHLORIDE
     Indication: PAIN
     Dosage: 4 MG,Q6H
  21. DARIFENACIN HYDROBROMIDE. [Concomitant]
     Active Substance: DARIFENACIN HYDROBROMIDE
  22. ABATACEPT [Suspect]
     Active Substance: ABATACEPT
     Dosage: 750 MG EVERY MOUTH
     Dates: start: 200611, end: 2007
  23. GOLD [Suspect]
     Active Substance: GOLD
     Indication: RHEUMATOID ARTHRITIS
  24. KINERET [Concomitant]
     Active Substance: ANAKINRA
  25. SYNTHROID [Concomitant]
     Active Substance: LEVOTHYROXINE SODIUM
     Dosage: UNK
  26. LOPERAMIDE HYDROCHLORIDE. [Concomitant]
     Active Substance: LOPERAMIDE HYDROCHLORIDE
     Dosage: UNK UNK,BID
  27. ACETAMINOPHEN. [Concomitant]
     Active Substance: ACETAMINOPHEN
  28. KADIAN [Concomitant]
     Active Substance: MORPHINE SULFATE
  29. TRIMETHOPRIM. [Concomitant]
     Active Substance: TRIMETHOPRIM
  30. PANTOPRAZOLE SODIUM ANHYDROUS [Concomitant]
     Active Substance: PANTOPRAZOLE SODIUM ANHYDROUS
  31. PLAQUENIL [Suspect]
     Active Substance: HYDROXYCHLOROQUINE SULFATE
     Indication: RHEUMATOID ARTHRITIS
     Dosage: 200 MG,BID
     Route: 065
  32. ORENCIA [Suspect]
     Active Substance: ABATACEPT
     Indication: RHEUMATOID ARTHRITIS
     Dosage: UNK UNK,UNK
     Route: 042
     Dates: start: 200611, end: 200711
  33. ORPHENADRINE CITRATE. [Concomitant]
     Active Substance: ORPHENADRINE CITRATE
     Dosage: UNK UNK,BID
  34. OMNARIS [Concomitant]
     Active Substance: CICLESONIDE
     Dosage: UNK
  35. CODEINE [Concomitant]
     Active Substance: CODEINE
  36. OXYNEO [Concomitant]
     Active Substance: OXYCODONE
  37. DYCLONE [Concomitant]
     Active Substance: DYCLONINE HYDROCHLORIDE
  38. ANAKINRA [Concomitant]
     Active Substance: ANAKINRA
  39. SODIUM AUROTHIOMALATE [Suspect]
     Active Substance: GOLD SODIUM THIOMALATE
     Route: 030
  40. ACTEMRA [Suspect]
     Active Substance: TOCILIZUMAB
     Indication: RHEUMATOID ARTHRITIS
     Dosage: UNK UNK,UNK
     Route: 042
     Dates: start: 20150203, end: 20150203
  41. RITUXAN [Suspect]
     Active Substance: RITUXIMAB
     Indication: PRODUCT USED FOR UNKNOWN INDICATION
     Dosage: 1000 MG (DAY 1 AND DAY 10)
     Route: 042
     Dates: start: 2007, end: 201010
  42. FUROSEMIDE. [Concomitant]
     Active Substance: FUROSEMIDE
     Dosage: 40 MG,TID
  43. ATIVAN [Concomitant]
     Active Substance: LORAZEPAM
     Dosage: 1 MG,HS
  44. MORPHINE SULFATE. [Concomitant]
     Active Substance: MORPHINE SULFATE
  45. ARAVA [Suspect]
     Active Substance: LEFLUNOMIDE
     Indication: RHEUMATOID ARTHRITIS
     Dosage: 20 MG,QD
     Route: 065
     Dates: start: 200408
  46. ENBREL [Suspect]
     Active Substance: ETANERCEPT
     Indication: RHEUMATOID ARTHRITIS
     Dosage: 25 MG,BIW
     Route: 065
     Dates: start: 200205, end: 200409
  47. VAGIFEM [Concomitant]
     Active Substance: ESTRADIOL
     Dosage: UNK
  48. URISPAS [Concomitant]
     Active Substance: FLAVOXATE HYDROCHLORIDE

REACTIONS (25)
  - Herpes zoster [Unknown]
  - Therapeutic product effect incomplete [Unknown]
  - Rheumatoid arthritis [Unknown]
  - Drug ineffective [Unknown]
  - Blood cholesterol increased [Unknown]
  - Anaemia [Unknown]
  - Peripheral swelling [Not Recovered/Not Resolved]
  - Joint swelling [Unknown]
  - Liver function test abnormal [Unknown]
  - Swelling [Unknown]
  - Tenderness [Unknown]
  - Pneumonia viral [Not Recovered/Not Resolved]
  - Fibromyalgia [Unknown]
  - Stomatitis [Unknown]
  - Drug intolerance [Unknown]
  - Herpes zoster [Unknown]
  - Arthralgia [Unknown]
  - Leukopenia [Unknown]
  - Tenderness [Unknown]
  - C-reactive protein abnormal [Not Recovered/Not Resolved]
  - Oral pain [Unknown]
  - Hypersensitivity [Unknown]
  - Arthritis [Unknown]
  - Synovitis [Unknown]
  - Infection [Unknown]

NARRATIVE: CASE EVENT DATE: 2015
